FAERS Safety Report 13928711 (Version 1)
Quarter: 2017Q3

REPORT INFORMATION
  Report Type: Report from Study
  Country: None (occurrence: AR)
  Receive Date: 20170901
  Receipt Date: 20170901
  Transmission Date: 20171127
  Serious: Yes (Other)
  Sender: FDA-Public Use
  Company Number: AR-ABBVIE-17K-007-2032354-00

PATIENT
  Age: 35 Year
  Sex: Female
  Weight: 73 kg

DRUGS (1)
  1. HUMIRA [Suspect]
     Active Substance: ADALIMUMAB
     Indication: PSORIASIS
     Route: 058
     Dates: start: 20170127

REACTIONS (10)
  - Vomiting [Recovering/Resolving]
  - Hypotension [Unknown]
  - Neck pain [Recovering/Resolving]
  - Lymphadenopathy [Not Recovered/Not Resolved]
  - Tension headache [Unknown]
  - Headache [Not Recovered/Not Resolved]
  - Cerebrospinal fluid leakage [Recovering/Resolving]
  - Injury [Recovering/Resolving]
  - Muscular weakness [Recovering/Resolving]
  - Swelling [Not Recovered/Not Resolved]

NARRATIVE: CASE EVENT DATE: 20170506
